FAERS Safety Report 8307496-3 (Version None)
Quarter: 2012Q2

REPORT INFORMATION
  Report Type: 
  Country: None (occurrence: None)
  Receive Date: 20120424
  Receipt Date: 20120419
  Transmission Date: 20120825
  Serious: Yes (Other)
  Sender: FDA-Public Use
  Company Number: NL-SANOFI-AVENTIS-2012SA027568

PATIENT
  Age: 46 Year
  Sex: Female
  Weight: 76 kg

DRUGS (2)
  1. OXALIPLATIN [Suspect]
     Route: 042
     Dates: start: 20120308, end: 20120330
  2. XELODA [Concomitant]
     Route: 048
     Dates: start: 20120308, end: 20120322

REACTIONS (1)
  - TRANSIENT ISCHAEMIC ATTACK [None]
